FAERS Safety Report 9252028 (Version 1)
Quarter: 2013Q1

REPORT INFORMATION
  Report Type: Spontaneous
  Country: US (occurrence: None)
  Receive Date: 20130305
  Receipt Date: 20130305
  Transmission Date: 20140127
  Serious: Yes (Other)
  Sender: FDA-Public Use
  Company Number: 163-21880-12091009

PATIENT
  Age: 66 Year
  Sex: Male

DRUGS (8)
  1. REVLIMID [Suspect]
     Indication: PLASMA CELL LEUKAEMIA
     Dosage: 25 MG, 21 IN 21 D, PO
     Dates: start: 20120721
  2. ASA (ACETYLSALICYLIC ACID) [Concomitant]
  3. DEXAMETHASONE (DEXAMETHASONE) [Concomitant]
  4. FENTANYL (FENTANYL) [Concomitant]
  5. PANTOPRAZOLE (PANTOPRAZOLE) [Concomitant]
  6. PERCOCET (OXYCOCET) [Concomitant]
  7. TAMSULOSIN (TAMSULOSIN) [Concomitant]
  8. ULORIC (FEBUXOSTAT) [Concomitant]

REACTIONS (3)
  - Full blood count decreased [None]
  - Plasmacytoma [None]
  - Disease progression [None]
